FAERS Safety Report 17363724 (Version 1)
Quarter: 2020Q1

REPORT INFORMATION
  Report Type: Spontaneous
  Country: TW (occurrence: TW)
  Receive Date: 20200203
  Receipt Date: 20200203
  Transmission Date: 20200409
  Serious: Yes (Other)
  Sender: FDA-Public Use
  Company Number: TW-ANIPHARMA-2020-TW-000005

PATIENT
  Age: 80 Year
  Sex: Male

DRUGS (2)
  1. SULFAMETHOXAZOLE + TRIMETHOPRIM (NON-SPECIFIC) [Suspect]
     Active Substance: SULFAMETHOXAZOLE\TRIMETHOPRIM
     Indication: MYCOBACTERIAL INFECTION
     Dosage: 1600 MG DAILY
  2. CLARITHROMYCIN EXTENDED-RELEASE (NON-SPECIFIC) [Suspect]
     Active Substance: CLARITHROMYCIN
     Indication: MYCOBACTERIAL INFECTION
     Dosage: 1000 MG DAILY

REACTIONS (1)
  - Jarisch-Herxheimer reaction [Unknown]
